FAERS Safety Report 9805399 (Version 1)
Quarter: 2014Q1

REPORT INFORMATION
  Report Type: Spontaneous
  Country: None (occurrence: None)
  Receive Date: 20140108
  Receipt Date: 20140108
  Transmission Date: 20141002
  Serious: Yes (Disabling)
  Sender: FDA-Public Use
  Company Number: None

PATIENT
  Age: 44 Year
  Sex: Female
  Weight: 61.69 kg

DRUGS (1)
  1. FIBRISTAL (UNKNOWN) [Suspect]
     Indication: UTERINE LEIOMYOMA
     Dosage: ONE PILL
     Route: 048
     Dates: start: 20131212, end: 20140105

REACTIONS (1)
  - Uterine leiomyoma [None]
